FAERS Safety Report 4268686-2 (Version None)
Quarter: 2004Q1

REPORT INFORMATION
  Report Type: 
  Country: None (occurrence: None)
  Receive Date: 20040109
  Receipt Date: 20031224
  Transmission Date: 20041129
  Serious: Yes (Life-Threatening, Hospitalization)
  Sender: FDA-Public Use
  Company Number: STA-AE-03-MTX-198

PATIENT
  Age: 78 Year
  Sex: Female

DRUGS (8)
  1. RHEUMATREX [Suspect]
     Indication: RHEUMATOID ARTHRITIS
     Dosage: 6 MG 1 X PER 1 WK, ORAL
     Route: 048
     Dates: start: 20030914, end: 20031123
  2. IBUPROFEN [Concomitant]
  3. LOCHOL (FLUVASTATIN SODIUM) [Concomitant]
  4. ISOSORBIDE DINITRATE [Concomitant]
  5. ADALAT [Concomitant]
  6. PERSANTINE [Concomitant]
  7. ISALON (ALDIOXA) [Concomitant]
  8. SELBEX (TEPRENONE) [Concomitant]

REACTIONS (4)
  - INTERSTITIAL LUNG DISEASE [None]
  - LYMPHOCYTE STIMULATION TEST POSITIVE [None]
  - PO2 DECREASED [None]
  - PULMONARY ALVEOLAR HAEMORRHAGE [None]
